FAERS Safety Report 5146932-0 (Version None)
Quarter: 2006Q4

REPORT INFORMATION
  Report Type: 
  Country: None (occurrence: None)
  Receive Date: 20061109
  Receipt Date: 20061107
  Transmission Date: 20070319
  Serious: Yes (Life-Threatening, Hospitalization)
  Sender: FDA-Public Use
  Company Number: IT-BRISTOL-MYERS SQUIBB COMPANY-13568886

PATIENT
  Age: 62 Year
  Sex: Female
  Weight: 90 kg

DRUGS (5)
  1. TAXOL [Suspect]
     Route: 042
     Dates: start: 20061020, end: 20061020
  2. DOXORUBICIN HCL [Suspect]
     Indication: THERAPEUTIC PROCEDURE
     Route: 042
     Dates: start: 20061020, end: 20061020
  3. EXEMESTANE [Suspect]
     Indication: THERAPEUTIC PROCEDURE
     Route: 048
     Dates: start: 20061028, end: 20061106
  4. NADROPARINE [Concomitant]
     Indication: THERAPEUTIC PROCEDURE
  5. RAMIPRIL [Concomitant]
     Route: 048
     Dates: start: 20060921

REACTIONS (1)
  - PULMONARY EMBOLISM [None]
